FAERS Safety Report 24903697 (Version 1)
Quarter: 2025Q1

REPORT INFORMATION
  Report Type: Spontaneous
  Country: US (occurrence: None)
  Receive Date: 20250129
  Receipt Date: 20250129
  Transmission Date: 20250409
  Serious: Yes (Other)
  Sender: FDA-CTU
  Company Number: None

PATIENT
  Age: 42 Year
  Sex: Female
  Weight: 97.2 kg

DRUGS (4)
  1. ZOLPIDEM TARTRATE [Suspect]
     Active Substance: ZOLPIDEM TARTRATE
     Indication: Insomnia
     Dosage: FREQUENCY : AT BEDTIME;?
     Route: 048
     Dates: start: 20240522, end: 20250110
  2. TEMAZEPAM [Concomitant]
     Active Substance: TEMAZEPAM
     Dates: start: 20240102, end: 20250129
  3. BUPROPION [Concomitant]
     Active Substance: BUPROPION
     Dates: start: 20180405, end: 20250129
  4. ADDERALL [Concomitant]
     Active Substance: AMPHETAMINE ASPARTATE\AMPHETAMINE SULFATE\DEXTROAMPHETAMINE SACCHARATE\DEXTROAMPHETAMINE SULFATE
     Dates: start: 20240731, end: 20250129

REACTIONS (2)
  - Dizziness [None]
  - Fatigue [None]

NARRATIVE: CASE EVENT DATE: 20250110
